FAERS Safety Report 9807856 (Version 1)
Quarter: 2014Q1

REPORT INFORMATION
  Report Type: Spontaneous
  Country: US (occurrence: US)
  Receive Date: 20140110
  Receipt Date: 20140110
  Transmission Date: 20141002
  Serious: Yes (Other)
  Sender: FDA-Public Use
  Company Number: US-ASTELLAS-2014US000217

PATIENT
  Sex: 0

DRUGS (2)
  1. XTANDI [Suspect]
     Indication: PRODUCT USED FOR UNKNOWN INDICATION
     Dosage: UNK
     Route: 065
  2. XTANDI [Suspect]
     Dosage: LOWER DOSE
     Route: 065

REACTIONS (2)
  - Swelling [Recovering/Resolving]
  - Hypersensitivity [Recovering/Resolving]
